FAERS Safety Report 16900117 (Version 4)
Quarter: 2020Q1

REPORT INFORMATION
  Report Type: Report from Study
  Country: CA (occurrence: CA)
  Receive Date: 20191009
  Receipt Date: 20200120
  Transmission Date: 20200409
  Serious: Yes (Other)
  Sender: FDA-Public Use
  Company Number: CA-BRISTOL-MYERS SQUIBB COMPANY-BMS-2018-104356

PATIENT
  Age: 27 Year
  Sex: Female

DRUGS (10)
  1. TRAMADOL. [Concomitant]
     Active Substance: TRAMADOL
     Indication: PRODUCT USED FOR UNKNOWN INDICATION
     Route: 065
  2. PREDNISONE. [Concomitant]
     Active Substance: PREDNISONE
     Indication: PRODUCT USED FOR UNKNOWN INDICATION
     Route: 065
  3. ABATACEPT [Suspect]
     Active Substance: ABATACEPT
     Indication: RHEUMATOID ARTHRITIS
     Dosage: 500 MILLIGRAM, Q4WK
     Route: 042
     Dates: start: 20181104
  4. ABATACEPT [Suspect]
     Active Substance: ABATACEPT
     Indication: RHEUMATOID ARTHRITIS
     Dosage: 125 MILLIGRAM, QWK
     Route: 058
     Dates: start: 201812, end: 20190120
  5. CLONAZEPAM. [Concomitant]
     Active Substance: CLONAZEPAM
     Indication: PRODUCT USED FOR UNKNOWN INDICATION
     Dosage: UNK, PRN
     Route: 065
  6. CELEBREX [Concomitant]
     Active Substance: CELECOXIB
     Indication: PRODUCT USED FOR UNKNOWN INDICATION
     Dosage: 100 MG, BID, PRN
     Route: 048
  7. SEROQUEL [Concomitant]
     Active Substance: QUETIAPINE FUMARATE
     Indication: PERSONALITY DISORDER
     Dosage: 50 MILLIGRAM
     Route: 065
  8. DIANE (CYPROTERONE ACETATE\ETHINYL ESTRADIOL) [Concomitant]
     Active Substance: CYPROTERONE ACETATE\ETHINYL ESTRADIOL
     Indication: CONTRACEPTION
     Route: 065
  9. TYLENOL [Concomitant]
     Active Substance: ACETAMINOPHEN
     Indication: PRODUCT USED FOR UNKNOWN INDICATION
     Route: 065
  10. NAPROXEN. [Concomitant]
     Active Substance: NAPROXEN
     Indication: PRODUCT USED FOR UNKNOWN INDICATION
     Route: 065

REACTIONS (28)
  - Urinary tract infection [Not Recovered/Not Resolved]
  - Diarrhoea [Unknown]
  - Abdominal discomfort [Unknown]
  - Dehydration [Unknown]
  - Influenza [Recovering/Resolving]
  - Nausea [Unknown]
  - Joint swelling [Not Recovered/Not Resolved]
  - Hyperhidrosis [Unknown]
  - Malaise [Unknown]
  - Poor venous access [Unknown]
  - Syncope [Unknown]
  - Pharyngitis [Unknown]
  - Oropharyngeal pain [Unknown]
  - Asthenia [Unknown]
  - Peripheral swelling [Recovered/Resolved]
  - Paraesthesia [Recovered/Resolved]
  - Condition aggravated [Unknown]
  - Pain in extremity [Not Recovered/Not Resolved]
  - Anxiety [Unknown]
  - Dizziness [Unknown]
  - Localised infection [Unknown]
  - Alopecia [Not Recovered/Not Resolved]
  - Upper respiratory tract infection [Unknown]
  - Infusion site extravasation [Unknown]
  - Product dose omission [Recovering/Resolving]
  - Pneumonia [Recovered/Resolved]
  - Fatigue [Unknown]
  - Viral infection [Unknown]

NARRATIVE: CASE EVENT DATE: 20181104
